FAERS Safety Report 9434829 (Version 2)
Quarter: 2013Q3

REPORT INFORMATION
  Report Type: Spontaneous
  Country: TH (occurrence: TH)
  Receive Date: 20130801
  Receipt Date: 20130807
  Transmission Date: 20140515
  Serious: Yes (Hospitalization, Other)
  Sender: FDA-Public Use
  Company Number: TH-PFIZER INC-2013222461

PATIENT
  Age: 50 Year
  Sex: Female

DRUGS (6)
  1. PANTOPRAZOLE [Suspect]
     Indication: DUODENAL ULCER HAEMORRHAGE
     Dosage: 192MG (8MG, 1 IN 1 HR)
     Route: 042
  2. VORICONAZOLE [Suspect]
     Indication: DUODENAL ULCER HAEMORRHAGE
     Dosage: UNK
     Route: 042
  3. GANCICLOVIR [Suspect]
     Indication: DUODENAL ULCER HAEMORRHAGE
     Dosage: 10 MG/KG (5 MG/KG EVERY 12 HOUR)
     Route: 042
  4. PREDNISOLONE [Concomitant]
     Dosage: UNK
     Route: 048
  5. MYFORTIC [Concomitant]
     Dosage: UNK
     Route: 048
  6. PROGRAFT [Concomitant]
     Dosage: UNK

REACTIONS (2)
  - Drug ineffective [Unknown]
  - Duodenal ulcer haemorrhage [Not Recovered/Not Resolved]
